FAERS Safety Report 6962621-1 (Version None)
Quarter: 2010Q3

REPORT INFORMATION
  Report Type: 
  Country: None (occurrence: None)
  Receive Date: 20100902
  Receipt Date: 20100824
  Transmission Date: 20110219
  Serious: Yes (Hospitalization, Other)
  Sender: FDA-Public Use
  Company Number: US-PFIZER INC-2010056766

PATIENT
  Sex: Female
  Weight: 69.853 kg

DRUGS (4)
  1. CHANTIX [Suspect]
     Indication: SMOKING CESSATION THERAPY
     Dosage: UNK
     Dates: start: 20100401, end: 20100101
  2. LEXAPRO [Concomitant]
     Dosage: 10 MG, 1X/DAY
     Route: 048
  3. LORAZEPAM [Concomitant]
     Dosage: 1 MG, 4X/DAY
     Route: 048
  4. TYLENOL (CAPLET) [Concomitant]
     Dosage: UNK

REACTIONS (28)
  - AGITATION [None]
  - AMNESIA [None]
  - ANGER [None]
  - ANXIETY [None]
  - ASTHENIA [None]
  - CARBON DIOXIDE INCREASED [None]
  - CHEST DISCOMFORT [None]
  - CHEST PAIN [None]
  - CHOKING [None]
  - CONVULSION [None]
  - COUGH [None]
  - CYANOSIS [None]
  - DEPRESSION [None]
  - DISTURBANCE IN ATTENTION [None]
  - DYSPNOEA [None]
  - HALLUCINATION, AUDITORY [None]
  - HYPERHIDROSIS [None]
  - INFARCTION [None]
  - INSOMNIA [None]
  - MALAISE [None]
  - MOOD SWINGS [None]
  - PAIN [None]
  - PERSONALITY CHANGE [None]
  - PLATELET COUNT INCREASED [None]
  - PSYCHOTIC DISORDER [None]
  - RESPIRATORY ARREST [None]
  - SINUS TACHYCARDIA [None]
  - UNRESPONSIVE TO STIMULI [None]
